FAERS Safety Report 7988160-7 (Version None)
Quarter: 2011Q4

REPORT INFORMATION
  Report Type: 
  Country: None (occurrence: None)
  Receive Date: 20111216
  Receipt Date: 20101207
  Transmission Date: 20120403
  Serious: No
  Sender: FDA-Public Use
  Company Number: US-BRISTOL-MYERS SQUIBB COMPANY-15428568

PATIENT
  Sex: Female

DRUGS (2)
  1. LEXAPRO [Concomitant]
  2. ABILIFY [Suspect]
     Dosage: INITITED AT 2 MG; INCREASED TO 5 MG; THEN DECREASED TO 2.5 MG AND FINALLY DISCONTINUED

REACTIONS (1)
  - TARDIVE DYSKINESIA [None]
